FAERS Safety Report 5635109-8 (Version None)
Quarter: 2008Q1

REPORT INFORMATION
  Report Type: 
  Country: None (occurrence: None)
  Receive Date: 20080222
  Receipt Date: 20080211
  Transmission Date: 20080703
  Serious: Yes (Other)
  Sender: FDA-Public Use
  Company Number: US-PFIZER INC-2007061679

PATIENT
  Sex: Male

DRUGS (9)
  1. LYRICA [Suspect]
     Indication: PAIN
     Dates: start: 20060201, end: 20060601
  2. LYRICA [Suspect]
     Indication: NEUROPATHY PERIPHERAL
  3. WARFARIN SODIUM [Concomitant]
  4. LANOXIN [Concomitant]
  5. FLOMAX [Concomitant]
  6. CARTIA XT [Concomitant]
  7. PROSCAR [Concomitant]
  8. METFORMIN HCL [Concomitant]
  9. MONOPRIL [Concomitant]

REACTIONS (3)
  - GAIT DISTURBANCE [None]
  - OEDEMA PERIPHERAL [None]
  - PAIN [None]
